FAERS Safety Report 9302215 (Version 1)
Quarter: 2013Q2

REPORT INFORMATION
  Report Type: Spontaneous
  Country: US (occurrence: US)
  Receive Date: 20130522
  Receipt Date: 20130522
  Transmission Date: 20140414
  Serious: No
  Sender: FDA-Public Use
  Company Number: US-009507513-1305USA002901

PATIENT
  Age: 50 Year
  Sex: Male

DRUGS (1)
  1. COZAAR [Suspect]
     Indication: BLOOD PRESSURE
     Dosage: THE PATIENT TOOK 50MG ON 15-APR-2013
     Route: 048

REACTIONS (1)
  - Herpes zoster [Unknown]
